FAERS Safety Report 5493290-8 (Version None)
Quarter: 2007Q4

REPORT INFORMATION
  Report Type: 
  Country: None (occurrence: None)
  Receive Date: 20071023
  Receipt Date: 20051129
  Transmission Date: 20080405
  Serious: No
  Sender: FDA-Public Use
  Company Number: US-BRISTOL-MYERS SQUIBB COMPANY-13197892

PATIENT
  Sex: Female
  Weight: 57 kg

DRUGS (1)
  1. KENALOG-40 [Suspect]
     Indication: ARTHRITIS
     Dates: start: 20051123

REACTIONS (4)
  - AGEUSIA [None]
  - ARTHRALGIA [None]
  - CONVULSION [None]
  - PRURITUS [None]
